FAERS Safety Report 4935432-6 (Version None)
Quarter: 2006Q1

REPORT INFORMATION
  Report Type: 
  Country: None (occurrence: None)
  Receive Date: 20060307
  Receipt Date: 20060220
  Transmission Date: 20060701
  Serious: Yes (Other)
  Sender: FDA-Public Use
  Company Number: NL-GLAXOSMITHKLINE-B0413961A

PATIENT
  Age: 48 Year
  Sex: Male
  Weight: 103 kg

DRUGS (2)
  1. RANITIDINE HYDROCHLORIDE [Suspect]
     Dosage: 150MG TWICE PER DAY
     Route: 065
     Dates: start: 20060105, end: 20060106
  2. MAGNESIUM HYDROXIDE TAB [Concomitant]
     Route: 065
     Dates: start: 20060106

REACTIONS (3)
  - CHROMATURIA [None]
  - HEPATIC FUNCTION ABNORMAL [None]
  - JAUNDICE [None]
